FAERS Safety Report 16876059 (Version 1)
Quarter: 2019Q4

REPORT INFORMATION
  Report Type: Spontaneous
  Country: JP (occurrence: JP)
  Receive Date: 20191002
  Receipt Date: 20191002
  Transmission Date: 20200122
  Serious: Yes (Hospitalization, Other)
  Sender: FDA-Public Use
  Company Number: JP-SAKK-2019SA245090AA

PATIENT
  Age: 3 Year
  Sex: Female

DRUGS (2)
  1. RASURITEK 1.5MG [Suspect]
     Active Substance: RASBURICASE
     Indication: TUMOUR LYSIS SYNDROME
     Dosage: UNK
     Route: 041
     Dates: start: 201905, end: 201905
  2. RASURITEK 1.5MG [Suspect]
     Active Substance: RASBURICASE
     Indication: PROPHYLAXIS

REACTIONS (2)
  - Renal impairment [Recovering/Resolving]
  - Haemolytic anaemia [Recovered/Resolved]

NARRATIVE: CASE EVENT DATE: 2019
